FAERS Safety Report 8885940 (Version 1)
Quarter: 2012Q4

REPORT INFORMATION
  Report Type: 
  Country: AR (occurrence: AR)
  Receive Date: 20121105
  Receipt Date: 20121105
  Transmission Date: 20130627
  Serious: Yes (Other)
  Sender: FDA-Public Use
  Company Number: AR-ROCHE-1152039

PATIENT
  Age: 58 Year
  Sex: Female

DRUGS (2)
  1. HERCEPTIN [Suspect]
     Indication: BREAST CANCER
     Route: 042
     Dates: start: 20120904
  2. DOCETAXEL [Suspect]
     Indication: BREAST CANCER
     Route: 065

REACTIONS (2)
  - Hypertension [Recovered/Resolved]
  - Cardiotoxicity [Recovered/Resolved]
